FAERS Safety Report 5614161-X (Version None)
Quarter: 2008Q1

REPORT INFORMATION
  Report Type: 
  Country: None (occurrence: None)
  Receive Date: 20080205
  Receipt Date: 20080131
  Transmission Date: 20080703
  Serious: Yes (Other)
  Sender: FDA-Public Use
  Company Number: A0706676A

PATIENT
  Sex: Male

DRUGS (5)
  1. PAXIL CR [Suspect]
     Indication: PAIN
     Route: 048
     Dates: end: 20070603
  2. WELLBUTRIN SR [Suspect]
     Indication: DEPRESSION
     Dosage: 150MG TWICE PER DAY
     Route: 048
     Dates: start: 20070601
  3. OXYCONTIN [Concomitant]
  4. METHADONE HCL [Concomitant]
  5. BLOOD PRESSURE MEDICATION [Concomitant]

REACTIONS (12)
  - AMNESIA [None]
  - BLOOD TESTOSTERONE DECREASED [None]
  - CEREBROVASCULAR ACCIDENT [None]
  - DROOLING [None]
  - ERECTILE DYSFUNCTION [None]
  - HYPOAESTHESIA [None]
  - HYPOAESTHESIA FACIAL [None]
  - MEMORY IMPAIRMENT [None]
  - MONOPLEGIA [None]
  - SKIN ULCER [None]
  - SPEECH DISORDER [None]
  - SUICIDAL IDEATION [None]
